FAERS Safety Report 4588109-3 (Version None)
Quarter: 2005Q1

REPORT INFORMATION
  Report Type: 
  Country: None (occurrence: None)
  Receive Date: 20050216
  Receipt Date: 20050131
  Transmission Date: 20050727
  Serious: Yes (Other)
  Sender: FDA-Public Use
  Company Number: GBS050216526

PATIENT
  Age: 71 Year
  Sex: Female

DRUGS (6)
  1. YENTREVE                    (DULOXETINE HYDROCHLORIDE) [Suspect]
     Indication: STRESS INCONTINENCE
     Dosage: 40 MG/2 DAY
     Dates: start: 20041012, end: 20041022
  2. ATENOLOL [Concomitant]
  3. BENDROFLUAZIDE [Concomitant]
  4. ACETAMINOPHEN [Concomitant]
  5. ESTRADIOL [Concomitant]
  6. OMEPRAZOLE [Concomitant]

REACTIONS (3)
  - CONDITION AGGRAVATED [None]
  - DIARRHOEA [None]
  - DIVERTICULITIS [None]
